FAERS Safety Report 8795159 (Version 2)
Quarter: 2015Q2

REPORT INFORMATION
  Report Type: Report from Study
  Country: US (occurrence: US)
  Receive Date: 20120918
  Receipt Date: 20150617
  Transmission Date: 20150821
  Serious: Yes (Death)
  Sender: FDA-Public Use
  Company Number: US-ROCHE-1125947

PATIENT
  Sex: Female
  Weight: 66.74 kg

DRUGS (6)
  1. SORAFENIB [Concomitant]
     Active Substance: SORAFENIB
     Route: 065
  2. MITOMYCIN. [Concomitant]
     Active Substance: MITOMYCIN
  3. CISPLATIN. [Concomitant]
     Active Substance: CISPLATIN
  4. TARCEVA [Concomitant]
     Active Substance: ERLOTINIB HYDROCHLORIDE
     Route: 065
  5. DOXORUBICIN [Concomitant]
     Active Substance: DOXORUBICIN
  6. AVASTIN [Suspect]
     Active Substance: BEVACIZUMAB
     Indication: HEPATIC CANCER
     Route: 065
     Dates: start: 20080916

REACTIONS (2)
  - Off label use [Unknown]
  - Death [Fatal]
